FAERS Safety Report 12779567 (Version 1)
Quarter: 2016Q3

REPORT INFORMATION
  Report Type: Spontaneous
  Country: US (occurrence: US)
  Receive Date: 20160922
  Receipt Date: 20160922
  Transmission Date: 20161109
  Serious: Yes (Hospitalization)
  Sender: FDA-Public Use
  Company Number: None

PATIENT
  Age: 53 Year
  Sex: Male
  Weight: 109 kg

DRUGS (1)
  1. METOPROLOL. [Suspect]
     Active Substance: METOPROLOL
     Indication: CARDIAC OPERATION
     Route: 048
     Dates: start: 20091015, end: 20091018

REACTIONS (3)
  - Dyspnoea [None]
  - Bronchospasm [None]
  - Hyperhidrosis [None]

NARRATIVE: CASE EVENT DATE: 20091018
